FAERS Safety Report 24318126 (Version 1)
Quarter: 2024Q3

REPORT INFORMATION
  Report Type: Spontaneous
  Country: CH (occurrence: CH)
  Receive Date: 20240913
  Receipt Date: 20240913
  Transmission Date: 20241017
  Serious: Yes (Life-Threatening, Hospitalization, Other)
  Sender: SANDOZ
  Company Number: CH-SANDOZ-SDZ2024CH079214

PATIENT
  Age: 14 Year
  Sex: Female

DRUGS (1)
  1. METHOTREXATE [Suspect]
     Active Substance: METHOTREXATE
     Indication: Osteosarcoma
     Dosage: 12 G/M2
     Route: 042

REACTIONS (7)
  - Toxicity to various agents [Recovering/Resolving]
  - Acute kidney injury [Recovering/Resolving]
  - Acute hepatic failure [Recovering/Resolving]
  - Encephalopathy [Recovering/Resolving]
  - Multiple organ dysfunction syndrome [Unknown]
  - Haemodynamic instability [Unknown]
  - Rebound effect [Unknown]
